FAERS Safety Report 7342244-5 (Version None)
Quarter: 2011Q1

REPORT INFORMATION
  Report Type: 
  Country: None (occurrence: None)
  Receive Date: 20110310
  Receipt Date: 20110228
  Transmission Date: 20110831
  Serious: Yes (Other)
  Sender: FDA-Public Use
  Company Number: US-BIOGENIDEC-2007BI010912

PATIENT
  Age: 65 Year
  Sex: Female

DRUGS (4)
  1. AVONEX [Suspect]
     Dates: start: 20080227
  2. AVONEX [Suspect]
     Indication: MULTIPLE SCLEROSIS
     Dates: start: 19981116
  3. AVONEX [Suspect]
     Dates: start: 20030801, end: 20061101
  4. AVONEX [Suspect]
     Dates: start: 20070307, end: 20071107

REACTIONS (6)
  - SYSTEMIC LUPUS ERYTHEMATOSUS [None]
  - BENIGN SPLEEN TUMOUR [None]
  - RETINAL DETACHMENT [None]
  - GENERAL SYMPTOM [None]
  - HEPATIC CYST [None]
  - GAIT DISTURBANCE [None]
